FAERS Safety Report 6802763-4 (Version None)
Quarter: 2010Q2

REPORT INFORMATION
  Report Type: 
  Country: None (occurrence: None)
  Receive Date: 20100628
  Receipt Date: 20100616
  Transmission Date: 20101027
  Serious: Yes (Hospitalization)
  Sender: FDA-Public Use
  Company Number: DE-ELI_LILLY_AND_COMPANY-DE201006004586

PATIENT
  Weight: 61.7 kg

DRUGS (8)
  1. PEMETREXED [Suspect]
     Indication: NON-SMALL CELL LUNG CANCER
     Dosage: 500 MG/M2, UNKNOWN
     Route: 065
     Dates: start: 20100211
  2. CISPLATIN [Suspect]
     Indication: NON-SMALL CELL LUNG CANCER
     Dosage: 75 MG/M2, UNKNOWN
     Route: 065
     Dates: start: 20100211, end: 20100414
  3. BEVACIZUMAB [Suspect]
     Indication: NON-SMALL CELL LUNG CANCER
     Dosage: 7.5 MG/KG, UNKNOWN
     Route: 065
     Dates: start: 20100211
  4. FOLIC ACID [Concomitant]
     Indication: PROPHYLAXIS
  5. VIT B12 [Concomitant]
     Indication: PROPHYLAXIS
     Dates: start: 20100205
  6. DEXAMETHASONE [Concomitant]
     Indication: PROPHYLAXIS
     Dates: start: 20100210
  7. TARGIN [Concomitant]
     Dates: start: 20100204
  8. LACTULOSE [Concomitant]
     Dates: start: 20100224

REACTIONS (1)
  - HYPERKALAEMIA [None]
